FAERS Safety Report 9506407 (Version 1)
Quarter: 2013Q1

REPORT INFORMATION
  Report Type: Spontaneous
  Country: US (occurrence: None)
  Receive Date: 20130305
  Receipt Date: 20130305
  Transmission Date: 20140127
  Serious: Yes (Other)
  Sender: FDA-Public Use
  Company Number: 163-21880-11090975

PATIENT
  Age: 61 Year
  Sex: Female
  Weight: 58.97 kg

DRUGS (17)
  1. REVLIMID (LENALIDOMIDE) (25 MILLIGRAM, CAPSULES) [Suspect]
     Indication: PLASMA CELL MYELOMA
     Dosage: 21/7
     Route: 048
     Dates: start: 20110816
  2. OMEPRAZOLE [Concomitant]
  3. VENLABAXIN [Concomitant]
  4. XANAX [Concomitant]
  5. ADVIL [Concomitant]
  6. DECARDRON [Concomitant]
  7. VELCADE [Concomitant]
  8. ZOMETA [Concomitant]
  9. CALCIUM [Concomitant]
  10. MAGNESIUM [Concomitant]
  11. PURINE [Concomitant]
  12. COQ10 [Concomitant]
  13. ASA [Concomitant]
  14. MULTIVITAMINS [Concomitant]
  15. VITAMIN C [Concomitant]
  16. FISH OIL [Concomitant]
  17. VITAMIN B12 [Concomitant]

REACTIONS (1)
  - Neuropathy peripheral [None]
